FAERS Safety Report 7705339-X (Version None)
Quarter: 2011Q3

REPORT INFORMATION
  Report Type: 
  Country: None (occurrence: None)
  Receive Date: 20110824
  Receipt Date: 20110815
  Transmission Date: 20111222
  Serious: Yes (Other)
  Sender: FDA-Public Use
  Company Number: BR-JNJFOC-20110803740

PATIENT

DRUGS (1)
  1. REMICADE [Suspect]
     Indication: MATERNAL EXPOSURE DURING PREGNANCY
     Route: 015

REACTIONS (2)
  - PREMATURE BABY [None]
  - INTESTINAL PERFORATION [None]
